FAERS Safety Report 4737868-5 (Version None)
Quarter: 2005Q3

REPORT INFORMATION
  Report Type: 
  Country: None (occurrence: None)
  Receive Date: 20050808
  Receipt Date: 20050808
  Transmission Date: 20060218
  Serious: No
  Sender: FDA-Public Use
  Company Number: None

PATIENT
  Age: 40 Year
  Sex: Male

DRUGS (1)
  1. VERAPAMIL HCL ER TABS 120 NORTON WATERFORD (IVAX [Suspect]
     Indication: HYPERTENSION
     Dosage: TAKE 1 TABLET EVER 24 HOURS
     Dates: start: 20050724

REACTIONS (2)
  - DIZZINESS [None]
  - PHARMACEUTICAL PRODUCT COMPLAINT [None]
